FAERS Safety Report 8461818-1 (Version None)
Quarter: 2012Q2

REPORT INFORMATION
  Report Type: 
  Country: None (occurrence: None)
  Receive Date: 20120618
  Receipt Date: 20120601
  Transmission Date: 20120825
  Serious: Yes (Other)
  Sender: FDA-Public Use
  Company Number: 2012MA006856

PATIENT
  Sex: Female

DRUGS (1)
  1. MINOXIDIL [Suspect]
     Dosage: 100 MG;X1;PO
     Route: 048

REACTIONS (4)
  - ACCIDENTAL DRUG INTAKE BY CHILD [None]
  - TACHYCARDIA [None]
  - HYPOTENSION [None]
  - FLUSHING [None]
